FAERS Safety Report 14807222 (Version 1)
Quarter: 2018Q2

REPORT INFORMATION
  Report Type: Report from Study
  Country: CA (occurrence: CA)
  Receive Date: 20180425
  Receipt Date: 20180425
  Transmission Date: 20180711
  Serious: Yes (Hospitalization)
  Sender: FDA-Public Use
  Company Number: PHHY2014CA165480

PATIENT
  Age: 63 Year
  Sex: Female

DRUGS (6)
  1. EXJADE [Suspect]
     Active Substance: DEFERASIROX
     Dosage: 5 DF, UNK
     Route: 048
  2. EXJADE [Suspect]
     Active Substance: DEFERASIROX
     Dosage: 1000 MG (4 TABLETS 250 MG), QD
     Route: 048
  3. EXJADE [Suspect]
     Active Substance: DEFERASIROX
     Dosage: 1500 MG (6 TABLETS 250 MG), QD
     Route: 048
  4. EXJADE [Suspect]
     Active Substance: DEFERASIROX
     Dosage: 1250 MG (5 TABLETS 250 MG), QD
     Route: 048
  5. EXJADE [Suspect]
     Active Substance: DEFERASIROX
     Dosage: 2000 MG, QD
     Route: 048
  6. EXJADE [Suspect]
     Active Substance: DEFERASIROX
     Indication: MYELODYSPLASTIC SYNDROME
     Dosage: 1000 MG (4 TABLETS OF 250 MG), QD
     Route: 048
     Dates: start: 20141031

REACTIONS (5)
  - Influenza [Unknown]
  - Diarrhoea [Not Recovered/Not Resolved]
  - Abdominal discomfort [Unknown]
  - Tongue neoplasm [Unknown]
  - Nausea [Unknown]

NARRATIVE: CASE EVENT DATE: 20180416
